FAERS Safety Report 9798636 (Version 3)
Quarter: 2015Q3

REPORT INFORMATION
  Report Type: Spontaneous
  Country: US (occurrence: US)
  Receive Date: 20140106
  Receipt Date: 20150806
  Transmission Date: 20151125
  Serious: No
  Sender: FDA-Public Use
  Company Number: US-GILEAD-2010-0029541

PATIENT
  Age: 50 Year
  Sex: Female
  Weight: 67.13 kg

DRUGS (10)
  1. WELLBUTRIN [Concomitant]
     Active Substance: BUPROPION HYDROCHLORIDE
  2. OMEPRAZOLE. [Concomitant]
     Active Substance: OMEPRAZOLE
  3. LETAIRIS [Suspect]
     Active Substance: AMBRISENTAN
     Indication: PULMONARY ARTERIAL HYPERTENSION
     Route: 048
     Dates: start: 20090618
  4. METOPROLOL [Concomitant]
     Active Substance: METOPROLOL
  5. FERROUS SULFATE [Concomitant]
     Active Substance: FERROUS SULFATE\FERROUS SULFATE, DRIED
  6. ADCIRCA [Concomitant]
     Active Substance: TADALAFIL
  7. OXYGEN. [Concomitant]
     Active Substance: OXYGEN
  8. TYLENOL [Concomitant]
     Active Substance: ACETAMINOPHEN
  9. WARFARIN [Concomitant]
     Active Substance: WARFARIN
  10. REMODULIN [Concomitant]
     Active Substance: TREPROSTINIL

REACTIONS (2)
  - Rash [Recovered/Resolved]
  - Pruritus [Recovered/Resolved]
